FAERS Safety Report 5155104-5 (Version None)
Quarter: 2006Q4

REPORT INFORMATION
  Report Type: 
  Country: None (occurrence: None)
  Receive Date: 20061120
  Receipt Date: 20061120
  Transmission Date: 20070319
  Serious: Yes (Life-Threatening, Other)
  Sender: FDA-Public Use
  Company Number: None

PATIENT
  Sex: Female
  Weight: 68.0396 kg

DRUGS (1)
  1. NUVARING [Suspect]
     Indication: CONTRACEPTION
     Dosage: 1 RING   WORN 3 WEEKS/OUT 1     VAG
     Route: 067
     Dates: start: 20060101, end: 20061026

REACTIONS (1)
  - DEEP VEIN THROMBOSIS [None]
